FAERS Safety Report 5058968-9 (Version None)
Quarter: 2006Q3

REPORT INFORMATION
  Report Type: 
  Country: None (occurrence: None)
  Receive Date: 20060721
  Receipt Date: 20060601
  Transmission Date: 20061208
  Serious: Yes (Other)
  Sender: FDA-Public Use
  Company Number: US-SANOFI-SYNTHELABO-A03200603791

PATIENT
  Age: 49 Year
  Sex: Male

DRUGS (2)
  1. AMBIEN [Suspect]
     Indication: INSOMNIA
     Route: 048
     Dates: start: 20030101
  2. AMBIEN [Suspect]
     Route: 048

REACTIONS (4)
  - DYSARTHRIA [None]
  - IMPAIRED DRIVING ABILITY [None]
  - SOMNOLENCE [None]
  - THERAPEUTIC RESPONSE DELAYED [None]
